FAERS Safety Report 18078114 (Version 2)
Quarter: 2025Q2

REPORT INFORMATION
  Report Type: Spontaneous
  Country: US (occurrence: US)
  Receive Date: 20200727
  Receipt Date: 20250404
  Transmission Date: 20250717
  Serious: Yes (Hospitalization, Other)
  Sender: MERCK SHARP AND DOHME
  Company Number: US-SEATTLE GENETICS-2020SGN02117

PATIENT
  Age: 52 Year
  Sex: Female

DRUGS (5)
  1. TUCATINIB [Suspect]
     Active Substance: TUCATINIB
     Indication: Breast cancer female
     Dosage: DOSE DESCRIPTION : 300 MILLIGRAM, BID?DAILY DOSE : 600 MILLIGRAM
     Dates: start: 20200430
  2. TUCATINIB [Suspect]
     Active Substance: TUCATINIB
     Indication: Breast cancer female
     Dosage: DOSE DESCRIPTION : 2 DF, QD?DAILY DOSE : 2 DOSAGE FORM
     Route: 048
  3. CAPECITABINE [Concomitant]
     Active Substance: CAPECITABINE
     Indication: Breast cancer female
  4. TRASTUZUMAB [Concomitant]
     Active Substance: TRASTUZUMAB
  5. ZOMETA [Concomitant]
     Active Substance: ZOLEDRONIC ACID

REACTIONS (12)
  - Pneumonia [Unknown]
  - Abdominal pain upper [Unknown]
  - Dyspnoea [Unknown]
  - Speech disorder [Unknown]
  - Haematemesis [Unknown]
  - Cough [Unknown]
  - Tenderness [Unknown]
  - Dysphagia [Unknown]
  - Pain in extremity [Unknown]
  - Dry skin [Unknown]
  - Skin exfoliation [Unknown]
  - Nausea [Unknown]

NARRATIVE: CASE EVENT DATE: 20200513
